FAERS Safety Report 20011075 (Version 1)
Quarter: 2021Q4

REPORT INFORMATION
  Report Type: Spontaneous
  Country: US (occurrence: US)
  Receive Date: 20211028
  Receipt Date: 20211028
  Transmission Date: 20220304
  Serious: Yes (Other)
  Sender: FDA-Public Use
  Company Number: US-ALLERGAN-2134505US

PATIENT
  Sex: Female
  Weight: 54.42 kg

DRUGS (4)
  1. REFRESH P.M. [Suspect]
     Active Substance: MINERAL OIL\PETROLATUM
     Indication: Dry eye
     Dosage: A TUBE A MONTH
     Route: 047
     Dates: start: 2019
  2. METHYLPREDNISOLONE [Concomitant]
     Active Substance: METHYLPREDNISOLONE
     Indication: Pulmonary sarcoidosis
     Dosage: 3 MG
  3. METHOTREXATE [Concomitant]
     Active Substance: METHOTREXATE
     Indication: Pulmonary sarcoidosis
     Dosage: 7.5 MG, Q WEEK
  4. FOLIC ACID [Concomitant]
     Active Substance: FOLIC ACID
     Indication: Drug toxicity prophylaxis
     Dosage: 1 MG

REACTIONS (4)
  - Cataract [Not Recovered/Not Resolved]
  - Poor quality product administered [Unknown]
  - Vision blurred [Recovered/Resolved]
  - Liquid product physical issue [Unknown]

NARRATIVE: CASE EVENT DATE: 20200101
